FAERS Safety Report 20834790 (Version 12)
Quarter: 2024Q4

REPORT INFORMATION
  Report Type: Report from Study
  Country: US (occurrence: US)
  Receive Date: 20220516
  Receipt Date: 20241007
  Transmission Date: 20250115
  Serious: No
  Sender: NOVARTIS
  Company Number: US-NOVARTISTESTPH-NVSC2022US111091

PATIENT
  Sex: Male
  Weight: 40.8 kg

DRUGS (3)
  1. COSENTYX [Suspect]
     Active Substance: SECUKINUMAB
     Indication: Psoriasis
     Dosage: 75 MG, QW
     Route: 058
     Dates: start: 20220428
  2. COSENTYX [Suspect]
     Active Substance: SECUKINUMAB
     Dosage: 75 MG, QMO
     Route: 058
  3. COSENTYX [Suspect]
     Active Substance: SECUKINUMAB
     Dosage: 75 MG (EVERY 4 WEEK)
     Route: 058

REACTIONS (10)
  - Injection site pain [Recovered/Resolved]
  - Respiratory syncytial virus infection [Recovered/Resolved]
  - Stress [Recovering/Resolving]
  - SARS-CoV-2 test positive [Recovered/Resolved]
  - Fatigue [Unknown]
  - Psoriasis [Recovering/Resolving]
  - Nasopharyngitis [Recovered/Resolved]
  - Respiratory syncytial virus infection [Recovered/Resolved]
  - COVID-19 [Recovered/Resolved]
  - Pigmentation disorder [Unknown]
